FAERS Safety Report 25602206 (Version 1)
Quarter: 2025Q3

REPORT INFORMATION
  Report Type: Spontaneous
  Country: CN (occurrence: CN)
  Receive Date: 20250724
  Receipt Date: 20250724
  Transmission Date: 20251020
  Serious: Yes (Other)
  Sender: BAYER HEALTHCARE LLC
  Company Number: CN-BAYER-2025A095016

PATIENT
  Age: 20 Year
  Sex: Female
  Weight: 55 kg

DRUGS (5)
  1. LORATADINE [Suspect]
     Active Substance: LORATADINE
     Indication: Intentional self-injury
     Dosage: 10 DF, QD
     Route: 048
     Dates: start: 20250328, end: 20250328
  2. QUETIAPINE FUMARATE [Suspect]
     Active Substance: QUETIAPINE FUMARATE
     Indication: Intentional self-injury
     Dosage: 20 DF, QD
     Route: 048
     Dates: start: 20250328, end: 20250328
  3. IBUPROFEN [Suspect]
     Active Substance: IBUPROFEN
     Indication: Intentional self-injury
     Dosage: 30 DF, QD, MODIFIED-RELEASE CAPSULE
     Route: 048
     Dates: start: 20250328, end: 20250328
  4. LITHIUM CARBONATE [Suspect]
     Active Substance: LITHIUM CARBONATE
     Indication: Intentional self-injury
     Dosage: 10 DF, QD
     Route: 048
     Dates: start: 20250328, end: 20250328
  5. ALPRAZOLAM [Suspect]
     Active Substance: ALPRAZOLAM
     Indication: Intentional self-injury
     Dosage: 8 DF, QD
     Route: 048
     Dates: start: 20250328, end: 20250328

REACTIONS (13)
  - Toxicity to various agents [Recovering/Resolving]
  - Dizziness [None]
  - Unresponsive to stimuli [None]
  - Respiratory rate increased [Recovering/Resolving]
  - Confusional state [Recovered/Resolved]
  - Intentional self-injury [None]
  - Electrocardiogram QT prolonged [None]
  - International normalised ratio increased [None]
  - Blood sodium decreased [None]
  - PO2 increased [None]
  - C-reactive protein increased [None]
  - Blood pressure decreased [None]
  - Depressed mood [None]

NARRATIVE: CASE EVENT DATE: 20250328
